FAERS Safety Report 15524497 (Version 8)
Quarter: 2020Q4

REPORT INFORMATION
  Report Type: Spontaneous
  Country: US (occurrence: US)
  Receive Date: 20181018
  Receipt Date: 20201223
  Transmission Date: 20210113
  Serious: Yes (Other)
  Sender: FDA-Public Use
  Company Number: US-PFIZER INC-2018410574

PATIENT
  Age: 72 Year
  Sex: Female
  Weight: 60 kg

DRUGS (12)
  1. INAVOLISIB. [Concomitant]
     Active Substance: INAVOLISIB
     Dosage: 9 MG, DAILY (ONE 5 MG TABLET AND FOUR 1 MG TABLET)
     Route: 048
     Dates: start: 20180705
  2. LETROZOLE. [Suspect]
     Active Substance: LETROZOLE
     Indication: BREAST CANCER METASTATIC
     Dosage: 2.5 MG, ONCE A DAY
     Route: 048
     Dates: start: 201806
  3. CALCIUM D3 [Concomitant]
     Active Substance: CALCIUM\CHOLECALCIFEROL
     Indication: SUPPLEMENTATION THERAPY
     Dosage: 600 UNK, TWICE A DAY
  4. IBRANCE [Suspect]
     Active Substance: PALBOCICLIB
     Indication: BREAST CANCER METASTATIC
     Dosage: 125 MG, UNK
     Route: 048
     Dates: start: 20180705
  5. IBRANCE [Suspect]
     Active Substance: PALBOCICLIB
     Indication: BREAST CANCER FEMALE
     Dosage: 100 MG, CYCLIC [100 MG ONE CAPSULE DAILY BY MOUTH FOR 21 DAYS AND 1 WEEK OFF]
     Route: 048
     Dates: start: 201807
  6. IBRANCE [Suspect]
     Active Substance: PALBOCICLIB
     Dosage: 100 MG, CYCLIC (EVERYDAY FOR 3 WEEKS ON AND ONE WEEK OFF)
     Route: 048
  7. INAVOLISIB. [Concomitant]
     Active Substance: INAVOLISIB
     Indication: BREAST CANCER METASTATIC
     Dosage: 9 MG, DAILY (ONE 5 MG TABLET AND FOUR 1 MG TABLET)
     Route: 048
     Dates: start: 20180705
  8. IBRANCE [Suspect]
     Active Substance: PALBOCICLIB
     Dosage: 100 MG, CYCLIC (EVERYDAY FOR 3 WEEKS ON AND ONE WEEK OFF)
     Route: 048
     Dates: start: 201808
  9. IBRANCE [Suspect]
     Active Substance: PALBOCICLIB
     Dosage: 125 MG, UNK
     Dates: end: 20200124
  10. LETROZOLE. [Suspect]
     Active Substance: LETROZOLE
     Dosage: 2.5 MG, ONCE A DAY
     Route: 048
     Dates: start: 201806
  11. XGEVA [Concomitant]
     Active Substance: DENOSUMAB
     Indication: BLOOD CALCIUM ABNORMAL
     Dosage: UNK, MONTHLY(SHOTS GIVEN IN THE OFFICE IN THE ABDOMEN MONTHLY)
  12. XGEVA [Concomitant]
     Active Substance: DENOSUMAB
     Indication: BONE DISORDER

REACTIONS (26)
  - Pneumonia [Recovered/Resolved with Sequelae]
  - Stomatitis [Not Recovered/Not Resolved]
  - Gingival recession [Not Recovered/Not Resolved]
  - Nail disorder [Not Recovered/Not Resolved]
  - Ageusia [Not Recovered/Not Resolved]
  - Fungal infection [Recovered/Resolved]
  - Rash [Unknown]
  - Skin irritation [Recovering/Resolving]
  - White blood cell count decreased [Recovered/Resolved]
  - Oral discomfort [Unknown]
  - Blood bilirubin increased [Unknown]
  - Weight decreased [Unknown]
  - Nausea [Recovering/Resolving]
  - Jaw disorder [Unknown]
  - Malaise [Unknown]
  - Dry throat [Not Recovered/Not Resolved]
  - Alopecia [Recovering/Resolving]
  - Muscle spasms [Recovering/Resolving]
  - Pulmonary mass [Recovering/Resolving]
  - Pain [Unknown]
  - Heart rate decreased [Unknown]
  - Dry mouth [Not Recovered/Not Resolved]
  - Dental discomfort [Unknown]
  - Influenza [Recovered/Resolved with Sequelae]
  - Diarrhoea [Recovering/Resolving]
  - Hypotension [Unknown]

NARRATIVE: CASE EVENT DATE: 201807
